FAERS Safety Report 6292744-4 (Version None)
Quarter: 2009Q3

REPORT INFORMATION
  Report Type: 
  Country: None (occurrence: None)
  Receive Date: 20090731
  Receipt Date: 20090721
  Transmission Date: 20100115
  Serious: Yes (Hospitalization, Disabling)
  Sender: FDA-Public Use
  Company Number: A0799670A

PATIENT
  Age: 55 Year
  Sex: Male

DRUGS (1)
  1. AVANDAMET [Suspect]
     Route: 048
     Dates: start: 20010101, end: 20050101

REACTIONS (3)
  - CARDIAC DISORDER [None]
  - CONDITION AGGRAVATED [None]
  - LUNG DISORDER [None]
